FAERS Safety Report 25385814 (Version 1)
Quarter: 2025Q2

REPORT INFORMATION
  Report Type: Spontaneous
  Country: CN (occurrence: CN)
  Receive Date: 20250602
  Receipt Date: 20250602
  Transmission Date: 20250716
  Serious: Yes (Hospitalization)
  Sender: ELI LILLY AND COMPANY
  Company Number: CN-Merck Healthcare KGaA-2025026107

PATIENT
  Age: 81 Year
  Sex: Male
  Weight: 64 kg

DRUGS (3)
  1. ERBITUX [Suspect]
     Active Substance: CETUXIMAB
     Indication: Colon cancer
     Route: 041
     Dates: start: 20250429, end: 20250429
  2. RALTITREXED [Suspect]
     Active Substance: RALTITREXED
     Indication: Colon cancer
     Dosage: 5 MG, DAILY
     Route: 041
     Dates: start: 20250430, end: 20250430
  3. SODIUM CHLORIDE [Concomitant]
     Active Substance: SODIUM CHLORIDE
     Indication: Medication dilution
     Dosage: 250 ML, DAILY
     Route: 041
     Dates: start: 20250429, end: 20250430

REACTIONS (1)
  - Myelosuppression [Recovering/Resolving]

NARRATIVE: CASE EVENT DATE: 20250513
